FAERS Safety Report 9792168 (Version 1)
Quarter: 2013Q4

REPORT INFORMATION
  Report Type: Spontaneous
  Country: US (occurrence: None)
  Receive Date: 20131231
  Receipt Date: 20131231
  Transmission Date: 20140711
  Serious: Yes (Other)
  Sender: FDA-Public Use
  Company Number: None

PATIENT
  Age: 58 Year
  Sex: Male

DRUGS (1)
  1. HUMIRA PEN [Suspect]
     Indication: PSORIASIS
     Dosage: Q 2 WEEKS
     Route: 058

REACTIONS (3)
  - Headache [None]
  - Fatigue [None]
  - Blood urine present [None]
